FAERS Safety Report 13212654 (Version 1)
Quarter: 2017Q1

REPORT INFORMATION
  Report Type: Spontaneous
  Country: US (occurrence: US)
  Receive Date: 20170210
  Receipt Date: 20170210
  Transmission Date: 20170428
  Serious: Yes (Other)
  Sender: FDA-Public Use
  Company Number: None

PATIENT
  Age: 62 Year
  Sex: Female
  Weight: 90 kg

DRUGS (3)
  1. PROPRANOLOL HCL [Concomitant]
     Active Substance: PROPRANOLOL HYDROCHLORIDE
  2. AMLODOPINE BESYLATE [Suspect]
     Active Substance: AMLODIPINE BESYLATE
     Indication: HYPERTENSION
     Route: 048
     Dates: start: 20140929, end: 20160324
  3. PRIMIDONE. [Concomitant]
     Active Substance: PRIMIDONE

REACTIONS (6)
  - Loss of employment [None]
  - Economic problem [None]
  - Fatigue [None]
  - Tremor [None]
  - Sleep apnoea syndrome [None]
  - Asthenia [None]
